FAERS Safety Report 4521718-6 (Version None)
Quarter: 2004Q4

REPORT INFORMATION
  Report Type: 
  Country: None (occurrence: None)
  Receive Date: 20041209
  Receipt Date: 20041129
  Transmission Date: 20050328
  Serious: Yes (Hospitalization, Other)
  Sender: FDA-Public Use
  Company Number: FR-ABBOTT-04P-056-0281846-00

PATIENT
  Sex: Male
  Weight: 87 kg

DRUGS (5)
  1. HUMIRA [Suspect]
     Indication: RHEUMATOID ARTHRITIS
     Dosage: 40 MG
     Route: 058
     Dates: start: 20040310, end: 20040614
  2. HUMIRA [Suspect]
     Dosage: 40 MG
     Route: 058
     Dates: start: 20040923
  3. METHOTREXATE [Concomitant]
     Indication: RHEUMATOID ARTHRITIS
     Dates: start: 20010501
  4. PREDNISONE [Concomitant]
     Indication: RHEUMATOID ARTHRITIS
     Dates: start: 20030801
  5. TOPALGIC [Concomitant]
     Indication: RHEUMATOID ARTHRITIS
     Dates: start: 20030701

REACTIONS (3)
  - ABDOMINAL PAIN [None]
  - ANAL ABSCESS [None]
  - PYREXIA [None]
